FAERS Safety Report 6086458-3 (Version None)
Quarter: 2009Q1

REPORT INFORMATION
  Report Type: 
  Country: None (occurrence: None)
  Receive Date: 20090223
  Receipt Date: 20090210
  Transmission Date: 20090719
  Serious: Yes (Other)
  Sender: FDA-Public Use
  Company Number: PHHY2009FR04982

PATIENT
  Age: 50 Year
  Sex: Female

DRUGS (3)
  1. LEPONEX [Suspect]
     Indication: PSYCHOTIC DISORDER
     Dosage: 100 MG, TID
  2. HALDOL [Concomitant]
     Dosage: 2.5 MG, QD
  3. VALIUM [Concomitant]
     Dosage: 10 MG, QD

REACTIONS (2)
  - MIOSIS [None]
  - VISUAL ACUITY REDUCED [None]
